FAERS Safety Report 10985651 (Version 1)
Quarter: 2015Q2

REPORT INFORMATION
  Report Type: Spontaneous
  Country: US (occurrence: None)
  Receive Date: 20150403
  Receipt Date: 20150403
  Transmission Date: 20150821
  Serious: Yes (Hospitalization)
  Sender: FDA-Public Use
  Company Number: None

PATIENT
  Age: 61 Year
  Sex: Female
  Weight: 72.12 kg

DRUGS (9)
  1. OMEGA 3 FISH OIL [Concomitant]
     Active Substance: FISH OIL\OMEGA-3 FATTY ACIDS
  2. LOMOLIT [Concomitant]
  3. XANAX [Suspect]
     Active Substance: ALPRAZOLAM
  4. GAS-X [Concomitant]
     Active Substance: DIMETHICONE
  5. VITAMIN B6 AND B12 [Concomitant]
  6. VELIPARIB [Suspect]
     Active Substance: VELIPARIB
     Indication: OVARIAN CANCER
     Dosage: 2 PILLS
     Route: 048
     Dates: start: 20150329
  7. VALTREX [Concomitant]
     Active Substance: VALACYCLOVIR HYDROCHLORIDE
  8. COUMADIN [Concomitant]
     Active Substance: WARFARIN SODIUM
  9. PHAZYME [Concomitant]
     Active Substance: DIMETHICONE 410

REACTIONS (1)
  - Intestinal obstruction [None]

NARRATIVE: CASE EVENT DATE: 20150401
